FAERS Safety Report 10189356 (Version 1)
Quarter: 2014Q2

REPORT INFORMATION
  Report Type: Spontaneous
  Country: US (occurrence: None)
  Receive Date: 20140521
  Receipt Date: 20140521
  Transmission Date: 20141212
  Serious: Yes (Hospitalization)
  Sender: FDA-Public Use
  Company Number: None

PATIENT
  Age: 71 Year
  Sex: Male

DRUGS (2)
  1. INLYTA [Suspect]
     Indication: RENAL CANCER
     Route: 048
     Dates: start: 20140226
  2. INLYTA [Suspect]

REACTIONS (4)
  - Muscular weakness [None]
  - Fatigue [None]
  - Diarrhoea [None]
  - Blood pressure abnormal [None]
